FAERS Safety Report 7963924-4 (Version None)
Quarter: 2011Q4

REPORT INFORMATION
  Report Type: 
  Country: None (occurrence: None)
  Receive Date: 20111208
  Receipt Date: 20111128
  Transmission Date: 20120403
  Serious: Yes (Hospitalization)
  Sender: FDA-Public Use
  Company Number: US-BAYER-201026969NA

PATIENT
  Age: 43 Year
  Sex: Female
  Weight: 92.971 kg

DRUGS (8)
  1. YAZ [Suspect]
     Indication: CONTRACEPTION
     Dosage: UNK UNK, UNK
     Route: 048
     Dates: start: 20090124, end: 20090909
  2. MONONESSA-28 [Concomitant]
     Indication: CONTRACEPTION
     Dosage: 1 TAB, QD
     Route: 048
     Dates: start: 20090918
  3. VESICARE [Concomitant]
     Indication: HYPERTONIC BLADDER
     Dosage: 5 MG, QD
     Route: 048
  4. CETIRIZINE HCL [Concomitant]
     Indication: HYPERSENSITIVITY
     Dosage: 10 MG, HS
     Route: 048
  5. NEXIUM [Concomitant]
     Indication: ULCER
     Dosage: 40 MG, HS
     Route: 048
  6. DOXAZOSIN MESYLATE [Concomitant]
     Indication: HYPERTONIC BLADDER
     Dosage: 4 MG, HS
     Route: 048
  7. FLUTICASONE PROPIONATE [Concomitant]
     Indication: HYPERSENSITIVITY
     Dosage: UNK UNK, PRN
     Route: 045
  8. TEMAZEPAM [Concomitant]
     Indication: INSOMNIA
     Dosage: 15 MG, PRN
     Route: 048

REACTIONS (3)
  - COAGULOPATHY [None]
  - PAIN [None]
  - PULMONARY EMBOLISM [None]
